FAERS Safety Report 6749669-7 (Version None)
Quarter: 2010Q2

REPORT INFORMATION
  Report Type: 
  Country: None (occurrence: None)
  Receive Date: 20100601
  Receipt Date: 20100527
  Transmission Date: 20101027
  Serious: Yes (Death)
  Sender: FDA-Public Use
  Company Number: B0657499A

PATIENT
  Sex: Female

DRUGS (8)
  1. AUGMENTIN '125' [Suspect]
     Indication: LUNG DISORDER
     Dosage: 2G PER DAY
     Route: 048
     Dates: start: 20100422, end: 20100423
  2. PREVISCAN [Suspect]
     Indication: CARDIAC VALVE PROSTHESIS USER
     Dosage: 20MG PER DAY
     Route: 048
     Dates: end: 20100423
  3. ALDACTONE [Concomitant]
     Dosage: 25MG PER DAY
     Route: 065
  4. DIFFU K [Concomitant]
     Dosage: 2UNIT PER DAY
     Route: 065
  5. IMOVANE [Concomitant]
     Dosage: 7.5MG PER DAY
     Route: 065
  6. LEVOTHYROXINE SODIUM [Concomitant]
     Dosage: 50MCG PER DAY
     Route: 065
  7. MIRTAZAPINE [Concomitant]
     Route: 065
  8. XANAX [Concomitant]
     Dosage: .25MG UNKNOWN
     Route: 065

REACTIONS (1)
  - INTERNATIONAL NORMALISED RATIO INCREASED [None]
